FAERS Safety Report 24307970 (Version 3)
Quarter: 2024Q4

REPORT INFORMATION
  Report Type: Report from Study
  Country: US (occurrence: US)
  Receive Date: 20240911
  Receipt Date: 20241106
  Transmission Date: 20250114
  Serious: No
  Sender: SUNOVION
  Company Number: US-SUMITOMO PHARMA SWITZERLAND GMBH-2024SPA001446

PATIENT

DRUGS (2)
  1. ORGOVYX [Suspect]
     Active Substance: RELUGOLIX
     Indication: Prostate cancer
     Dosage: 360 MG, SINGLE
     Route: 048
  2. ORGOVYX [Suspect]
     Active Substance: RELUGOLIX
     Dosage: 120 MG, QD
     Route: 048
     Dates: start: 20240614

REACTIONS (9)
  - Pain [Unknown]
  - Illness [Unknown]
  - Positron emission tomogram abnormal [Unknown]
  - Nasopharyngitis [Unknown]
  - Bone pain [Unknown]
  - Insomnia [Unknown]
  - Myalgia [Unknown]
  - Hot flush [Unknown]
  - Therapy interrupted [Recovered/Resolved]
